FAERS Safety Report 24589519 (Version 1)
Quarter: 2024Q4

REPORT INFORMATION
  Report Type: Spontaneous
  Country: RU (occurrence: RU)
  Receive Date: 20241107
  Receipt Date: 20241107
  Transmission Date: 20250115
  Serious: Yes (Death, Other)
  Sender: EXELIXIS
  Company Number: RU-IPSEN Group, Research and Development-2024-16852

PATIENT

DRUGS (1)
  1. CABOMETYX [Suspect]
     Active Substance: CABOZANTINIB S-MALATE
     Indication: Metastatic renal cell carcinoma
     Dosage: 60 MG, 1 TIME PER DAY
     Route: 065
     Dates: start: 20210101, end: 20230801

REACTIONS (2)
  - Death [Fatal]
  - Malignant neoplasm progression [Unknown]
